FAERS Safety Report 9193285 (Version 1)
Quarter: 2013Q1

REPORT INFORMATION
  Report Type: Spontaneous
  Country: US (occurrence: None)
  Receive Date: 20120703
  Receipt Date: 20120703
  Transmission Date: 20140127
  Serious: No
  Sender: FDA-Public Use
  Company Number: PHEH2012US006427

PATIENT
  Sex: Female

DRUGS (12)
  1. GILENYA [Suspect]
     Route: 048
  2. ZOCOR (SIMVASTATIN) [Concomitant]
  3. ZOLPIDEM (ZOLPIDEM) [Concomitant]
  4. VITAMIN D (ERGOCALCIFEROL) TABLET [Concomitant]
  5. ASPIRIN (ACETYLSALICYLIC ACID) [Concomitant]
  6. ESTRADIOL (ESTRADIOL) [Concomitant]
  7. HYDROCHLOROTHIAZIDE (HYDROCHLOROTHIAZIDE) [Concomitant]
  8. INDERAL (PROPRANOLOL HYDROCHLORIDE) [Concomitant]
  9. NAPROXEN (NAPROXEN) [Concomitant]
  10. XANAX (ALPRAZOLAM) [Concomitant]
  11. NEUROTRONIN (GABAPENTIN) [Concomitant]
  12. DOCUSATE SODIUM (DOCUSATE SODIUM) [Concomitant]

REACTIONS (2)
  - Abdominal pain upper [None]
  - Headache [None]
